FAERS Safety Report 19071267 (Version 1)
Quarter: 2021Q1

REPORT INFORMATION
  Report Type: Spontaneous
  Country: OM (occurrence: OM)
  Receive Date: 20210330
  Receipt Date: 20210330
  Transmission Date: 20210420
  Serious: Yes (Other)
  Sender: FDA-Public Use
  Company Number: OM-SUN PHARMACEUTICAL INDUSTRIES LTD-2021RR-288282

PATIENT
  Age: 65 Year
  Sex: Male

DRUGS (10)
  1. NIFEDIPINE. [Concomitant]
     Active Substance: NIFEDIPINE
     Indication: ISCHAEMIA
     Dosage: 30 MILLIGRAM, QD
     Route: 065
  2. ENOXAPARIN [Concomitant]
     Active Substance: ENOXAPARIN
     Indication: ISCHAEMIA
     Dosage: 40 MILLIGRAM, DAILY
     Route: 065
  3. DACARBAZINE. [Suspect]
     Active Substance: DACARBAZINE
     Indication: HODGKIN^S DISEASE
     Dosage: 1 CYCLE
     Route: 065
  4. VANCOMYCIN [Concomitant]
     Active Substance: VANCOMYCIN
     Indication: ENDOCARDITIS
     Dosage: UNK
     Route: 065
  5. VINBLASTINE [Suspect]
     Active Substance: VINBLASTINE
     Indication: HODGKIN^S DISEASE
     Dosage: 1 CYCLE
     Route: 065
  6. GLYCERYL DINITRATE [Concomitant]
     Indication: ISCHAEMIA
     Dosage: 40 MILLIGRAM,SR, ONCE DAILY
     Route: 065
  7. WARFARIN [Suspect]
     Active Substance: WARFARIN
     Indication: PERIPHERAL ISCHAEMIA
     Dosage: UNK
     Route: 065
  8. DOXORUBICIN [Suspect]
     Active Substance: DOXORUBICIN
     Indication: HODGKIN^S DISEASE
     Dosage: 1 CYCLE
     Route: 065
  9. CEFTRIAXONE. [Concomitant]
     Active Substance: CEFTRIAXONE
     Indication: ENDOCARDITIS
     Dosage: UNK
     Route: 065
  10. ASPIRIN. [Concomitant]
     Active Substance: ASPIRIN
     Indication: ISCHAEMIA
     Dosage: 100 MILLIGRAM, QD
     Route: 065

REACTIONS (2)
  - Hyponatraemia [Unknown]
  - Coagulation test abnormal [Recovered/Resolved]
